FAERS Safety Report 24220366 (Version 1)
Quarter: 2024Q3

REPORT INFORMATION
  Report Type: Spontaneous
  Country: BE (occurrence: BE)
  Receive Date: 20240818
  Receipt Date: 20240818
  Transmission Date: 20241016
  Serious: Yes (Life-Threatening, Hospitalization, Other)
  Sender: AUROBINDO
  Company Number: BE-FAMHP-DHH-N2024-122456

PATIENT
  Age: 84 Year
  Sex: Female
  Weight: 67 kg

DRUGS (9)
  1. BISOPROLOL FUMARATE [Interacting]
     Active Substance: BISOPROLOL FUMARATE
     Indication: Product used for unknown indication
     Dosage: 2 DOSAGE FORM, ONCE A DAY (BISOPROLOL FUMARATE 5 MG TABLET (OR.); ORAL; 1 X 2 PIECES PER DAY)
     Route: 048
  2. KISQALI [Suspect]
     Active Substance: RIBOCICLIB
     Indication: Breast cancer metastatic
     Dosage: 3 DOSAGE FORM, ONCE A DAY (3 TABLETS 1X/DAYYES NO)
     Route: 048
     Dates: start: 20240627, end: 20240718
  3. BUMETANIDE [Interacting]
     Active Substance: BUMETANIDE
     Indication: Product used for unknown indication
     Dosage: 1 DOSAGE FORM, ONCE A DAY (BURINEX 1 MG TABLET; ORAL; 1 PIECE ONCE PER DAY)
     Route: 048
  4. LANOXIN [Interacting]
     Active Substance: DIGOXIN
     Indication: Product used for unknown indication
     Dosage: 1 DOSAGE FORM, ONCE A DAY (LANOXIN 250 0.25 MG TABLET; ORAL; 1 PIECE ONCE PER DAY)
     Route: 048
  5. STEOVIT FORTE [Concomitant]
     Indication: Product used for unknown indication
     Dosage: 1 DOSAGE FORM, ONCE A DAY (STEOVIT FORTE LEMON 1,000 MG - 800 I.E. CHEWABLE TABLET; ORAL; 1 PIECE ON
     Route: 048
  6. ATROVENT [Concomitant]
     Active Substance: IPRATROPIUM BROMIDE
     Indication: Product used for unknown indication
     Dosage: 8 DOSAGE FORM, ONCE A DAY (ATROVENT HFA 20 ?G/DOSE METERED DOSE INHALATION SOLUTION. AEROSOL CAN; IN
  7. NADROPARIN CALCIUM [Concomitant]
     Active Substance: NADROPARIN CALCIUM
     Indication: Product used for unknown indication
     Dosage: 1 DOSAGE FORM, ONCE A DAY (FRAXIPARINE 5 700 IU (ANTI-XA)/0.6 ML INJ. SOLUTION S.C. GIVEN SYRINGE; S
     Route: 058
  8. LETROZOLE [Concomitant]
     Active Substance: LETROZOLE
     Indication: Product used for unknown indication
     Dosage: 1 DOSAGE FORM, ONCE A DAY (LETROZOLE 2.5 MG TABLET (OR.); ORAL; 1 PIECE ONCE PER DAY)
     Route: 048
  9. PHENPROCOUMON [Concomitant]
     Active Substance: PHENPROCOUMON
     Indication: Product used for unknown indication
     Dosage: 3 MILLIGRAM (MARCOUMAR 3 MG TABLET; ORAL; ACCORDING TO SCHEDULE)
     Route: 048

REACTIONS (5)
  - Electrocardiogram QT prolonged [Recovered/Resolved]
  - Bradycardia [Recovered/Resolved]
  - Drug level increased [Recovered/Resolved]
  - Toxicity to various agents [Recovered/Resolved]
  - Drug interaction [Recovered/Resolved]

NARRATIVE: CASE EVENT DATE: 20240718
